FAERS Safety Report 14323838 (Version 1)
Quarter: 2017Q4

REPORT INFORMATION
  Report Type: Spontaneous
  Country: US (occurrence: US)
  Receive Date: 20171222
  Receipt Date: 20171222
  Transmission Date: 20180321
  Serious: Yes (Death, Hospitalization)
  Sender: FDA-Public Use
  Company Number: None

PATIENT
  Age: 4 Year
  Sex: Female
  Weight: 14.9 kg

DRUGS (9)
  1. PREDNISONE. [Suspect]
     Active Substance: PREDNISONE
     Dates: end: 20171118
  2. METHOTREXATE. [Suspect]
     Active Substance: METHOTREXATE
     Dates: end: 20171121
  3. ONCASPAR [Suspect]
     Active Substance: PEGASPARGASE
     Dates: end: 20160712
  4. CYTARABINE. [Suspect]
     Active Substance: CYTARABINE
     Dates: end: 20171017
  5. HYDROCORTISONE. [Suspect]
     Active Substance: HYDROCORTISONE
     Dates: end: 20171017
  6. MERCAPTOPURINE. [Suspect]
     Active Substance: MERCAPTOPURINE
     Dates: end: 20171122
  7. VINCRISTINE SULFATE. [Suspect]
     Active Substance: VINCRISTINE SULFATE
     Dates: end: 20171114
  8. DEXAMETHASONE. [Suspect]
     Active Substance: DEXAMETHASONE
     Dates: end: 20171003
  9. CYCLOPHOSPHAMIDE. [Suspect]
     Active Substance: CYCLOPHOSPHAMIDE
     Dates: end: 20161221

REACTIONS (27)
  - Myocarditis [None]
  - Hypocalcaemia [None]
  - Pyrexia [None]
  - Blood pressure decreased [None]
  - Liver function test increased [None]
  - Blood creatine increased [None]
  - Colitis [None]
  - Pseudomonas test positive [None]
  - Multiple organ dysfunction syndrome [None]
  - Dialysis [None]
  - Hepatic failure [None]
  - Respiratory failure [None]
  - Diarrhoea [None]
  - Hypoglycaemia [None]
  - Gastrointestinal haemorrhage [None]
  - Activated partial thromboplastin time prolonged [None]
  - Renal failure [None]
  - Septic shock [None]
  - Febrile neutropenia [None]
  - Tachycardia [None]
  - Headache [None]
  - Haemoglobin decreased [None]
  - Haemoptysis [None]
  - Tachypnoea [None]
  - Pain [None]
  - Metabolic acidosis [None]
  - International normalised ratio increased [None]

NARRATIVE: CASE EVENT DATE: 20171205
